FAERS Safety Report 23612430 (Version 3)
Quarter: 2025Q3

REPORT INFORMATION
  Report Type: Spontaneous
  Country: PR (occurrence: PR)
  Receive Date: 20240308
  Receipt Date: 20250915
  Transmission Date: 20251020
  Serious: No
  Sender: PFIZER
  Company Number: PR-PFIZER INC-PV202400032020

PATIENT
  Age: 70 Year
  Sex: Female

DRUGS (2)
  1. XELJANZ XR [Suspect]
     Active Substance: TOFACITINIB CITRATE
  2. VITAMIN B12 [Suspect]
     Active Substance: CYANOCOBALAMIN

REACTIONS (2)
  - Blood cholesterol decreased [Unknown]
  - Cough [Unknown]
